FAERS Safety Report 7103251-0 (Version None)
Quarter: 2010Q4

REPORT INFORMATION
  Report Type: 
  Country: None (occurrence: None)
  Receive Date: 20101115
  Receipt Date: 20101105
  Transmission Date: 20110411
  Serious: Yes (Other)
  Sender: FDA-Public Use
  Company Number: GB-BAYER-201045988GPV

PATIENT
  Age: 40 Year
  Sex: Male

DRUGS (1)
  1. BETAFERON [Suspect]
     Indication: MULTIPLE SCLEROSIS
     Route: 058

REACTIONS (5)
  - DEPRESSED MOOD [None]
  - FATIGUE [None]
  - INJECTION SITE REACTION [None]
  - MYOCARDIAL INFARCTION [None]
  - VISION BLURRED [None]
